FAERS Safety Report 7576181-8 (Version None)
Quarter: 2011Q2

REPORT INFORMATION
  Report Type: 
  Country: None (occurrence: None)
  Receive Date: 20110623
  Receipt Date: 20110623
  Transmission Date: 20111010
  Serious: Yes (Life-Threatening, Hospitalization)
  Sender: FDA-Public Use
  Company Number: None

PATIENT
  Age: 54 Year
  Sex: Female

DRUGS (11)
  1. HYDROXYZINE [Concomitant]
  2. SAPHRIS [Suspect]
  3. LEVETIRACETAM [Concomitant]
  4. PANTOPRAZOLE [Concomitant]
  5. LAMOTRIGINE [Concomitant]
  6. ASCORBIC ACID [Concomitant]
  7. LORAZEPAM [Concomitant]
  8. TRAZODONE HCL [Concomitant]
  9. DOCUSATE [Concomitant]
  10. OLANZAPINE [Concomitant]
  11. LITHIUM CARBONATE [Concomitant]

REACTIONS (9)
  - BRADYCARDIA [None]
  - ACID BASE BALANCE ABNORMAL [None]
  - MULTI-ORGAN FAILURE [None]
  - HYPONATRAEMIA [None]
  - RENAL FAILURE ACUTE [None]
  - PNEUMONIA ASPIRATION [None]
  - CARDIAC ARREST [None]
  - ARRHYTHMIA [None]
  - POLYDIPSIA PSYCHOGENIC [None]
